FAERS Safety Report 24254972 (Version 1)
Quarter: 2024Q3

REPORT INFORMATION
  Report Type: Spontaneous
  Country: US (occurrence: US)
  Receive Date: 20240827
  Receipt Date: 20240827
  Transmission Date: 20241016
  Serious: No
  Sender: PFIZER
  Company Number: US-PFIZER INC-202400241768

PATIENT
  Sex: Female

DRUGS (8)
  1. BRENTUXIMAB VEDOTIN [Suspect]
     Active Substance: BRENTUXIMAB VEDOTIN
     Indication: Follicular lymphoma
     Dosage: UNK
     Dates: start: 202201
  2. BRENTUXIMAB VEDOTIN [Suspect]
     Active Substance: BRENTUXIMAB VEDOTIN
     Indication: Hodgkin^s disease
  3. DACARBAZINE [Suspect]
     Active Substance: DACARBAZINE
     Indication: Follicular lymphoma
     Dosage: UNK
     Dates: start: 202201
  4. DACARBAZINE [Suspect]
     Active Substance: DACARBAZINE
     Indication: Hodgkin^s disease
  5. DOXORUBICIN HYDROCHLORIDE [Suspect]
     Active Substance: DOXORUBICIN HYDROCHLORIDE
     Indication: Follicular lymphoma
     Dosage: UNK
     Dates: start: 202201
  6. DOXORUBICIN HYDROCHLORIDE [Suspect]
     Active Substance: DOXORUBICIN HYDROCHLORIDE
     Indication: Hodgkin^s disease
  7. VINBLASTINE [Suspect]
     Active Substance: VINBLASTINE
     Indication: Follicular lymphoma
     Dosage: UNK
     Dates: start: 202201
  8. VINBLASTINE [Suspect]
     Active Substance: VINBLASTINE
     Indication: Hodgkin^s disease

REACTIONS (1)
  - Neoplasm recurrence [Recovered/Resolved with Sequelae]

NARRATIVE: CASE EVENT DATE: 20220601
